FAERS Safety Report 17983474 (Version 1)
Quarter: 2020Q3

REPORT INFORMATION
  Report Type: Spontaneous
  Country: US (occurrence: US)
  Receive Date: 20200706
  Receipt Date: 20200706
  Transmission Date: 20201103
  Serious: Yes (Other)
  Sender: FDA-Public Use
  Company Number: NVSC2020US188812

PATIENT
  Age: 56 Year
  Sex: Male

DRUGS (9)
  1. MYCOPHENOLATE MOFETIL. [Suspect]
     Active Substance: MYCOPHENOLATE MOFETIL
     Indication: RENAL TRANSPLANT
     Dosage: 1000 MG, QD
     Route: 065
  2. PREDNISONE. [Suspect]
     Active Substance: PREDNISONE
     Indication: IMMUNOSUPPRESSANT DRUG THERAPY
  3. PREDNISONE. [Suspect]
     Active Substance: PREDNISONE
     Indication: HEART TRANSPLANT
     Dosage: 5 MG
     Route: 065
  4. TACROLIMUS. [Suspect]
     Active Substance: TACROLIMUS
     Indication: HEART TRANSPLANT
     Dosage: TACROLIMUS TROUGH GOAL TO 5?8 UG/L,
     Route: 065
  5. TACROLIMUS. [Suspect]
     Active Substance: TACROLIMUS
     Indication: IMMUNOSUPPRESSANT DRUG THERAPY
  6. MYCOPHENOLATE MOFETIL. [Suspect]
     Active Substance: MYCOPHENOLATE MOFETIL
     Indication: HEART TRANSPLANT
     Dosage: 2000 MG, QD
     Route: 065
  7. PREDNISONE. [Suspect]
     Active Substance: PREDNISONE
     Indication: RENAL TRANSPLANT
  8. MYCOPHENOLATE MOFETIL. [Suspect]
     Active Substance: MYCOPHENOLATE MOFETIL
     Indication: IMMUNOSUPPRESSANT DRUG THERAPY
     Dosage: 500 MG
     Route: 065
  9. TACROLIMUS. [Suspect]
     Active Substance: TACROLIMUS
     Indication: RENAL TRANSPLANT

REACTIONS (22)
  - Hyperkalaemia [Unknown]
  - Pneumonia klebsiella [Recovered/Resolved]
  - Pneumonia [Unknown]
  - Renal tubular necrosis [Unknown]
  - Respiratory distress [Unknown]
  - Oliguria [Unknown]
  - Malnutrition [Unknown]
  - Pleural effusion [Unknown]
  - Product use in unapproved indication [Unknown]
  - Staphylococcal infection [Unknown]
  - Corynebacterium infection [Unknown]
  - BK virus infection [Unknown]
  - Enterococcal infection [Unknown]
  - Staphylococcal bacteraemia [Unknown]
  - Morganella infection [Unknown]
  - Stenotrophomonas infection [Unknown]
  - Urinoma [Unknown]
  - COVID-19 [Recovered/Resolved]
  - Delayed graft function [Unknown]
  - Productive cough [Recovered/Resolved]
  - Aspiration [Unknown]
  - Abdominal pain lower [Unknown]
